FAERS Safety Report 23930456 (Version 1)
Quarter: 2024Q2

REPORT INFORMATION
  Report Type: Spontaneous
  Country: DE (occurrence: DE)
  Receive Date: 20240602
  Receipt Date: 20240602
  Transmission Date: 20240716
  Serious: Yes (Other)
  Sender: FDA-Public Use
  Company Number: DE-JNJFOC-20240574281

PATIENT
  Age: 65 Year
  Sex: Male

DRUGS (2)
  1. SPORANOX [Suspect]
     Active Substance: ITRACONAZOLE
     Indication: Histoplasmosis
     Route: 042
  2. SEMPERA [Suspect]
     Active Substance: ITRACONAZOLE
     Indication: Histoplasmosis
     Dosage: 14 MG/L
     Route: 048

REACTIONS (7)
  - Transplant dysfunction [Unknown]
  - Cholestasis [Unknown]
  - Leukocyturia [Unknown]
  - C-reactive protein increased [Unknown]
  - Hypoaesthesia [Unknown]
  - Alopecia [Unknown]
  - Tremor [Unknown]
